FAERS Safety Report 7102043-6 (Version None)
Quarter: 2010Q4

REPORT INFORMATION
  Report Type: 
  Country: None (occurrence: None)
  Receive Date: 20101115
  Receipt Date: 20101109
  Transmission Date: 20110411
  Serious: Yes (Death, Hospitalization)
  Sender: FDA-Public Use
  Company Number: DE-ROCHE-721398

PATIENT
  Sex: Male
  Weight: 70 kg

DRUGS (14)
  1. BEVACIZUMAB [Suspect]
     Indication: GLIOBLASTOMA
     Dosage: DATE OF LAST DOSE PRIOR TO SAE: 26 JULY 2010. FREQUENCY REPORTED AS: 1-0-0 TAG 15.
     Route: 042
     Dates: start: 20100726
  2. TEMODAL [Suspect]
     Indication: GLIOBLASTOMA
     Dosage: DOSAGE FORM:KPS. DATE OF LAST DOSE PRIOR TO SAE:16 JULY 2010. FREQUENCY: TAG 1-TAG 5 1-0-0.
     Route: 048
     Dates: start: 20100712
  3. TAVOR (GERMANY) [Suspect]
     Route: 065
     Dates: start: 20100712
  4. TESTOVIRON [Concomitant]
     Route: 030
     Dates: start: 20100809, end: 20100809
  5. HYDROCORTISON [Concomitant]
     Dates: start: 20100809
  6. TAMSULOSIN [Concomitant]
     Dosage: DRUG NAME:TAMSOLUSIN
     Dates: start: 20100726, end: 20100801
  7. RESTEX [Concomitant]
     Dates: start: 20100201, end: 20100831
  8. LAMOTRIGINE [Concomitant]
     Dosage: DRUG NAME:LAMOTRIGEN
     Dates: start: 20100426, end: 20100831
  9. ZOPICLON [Concomitant]
     Dates: start: 20100706, end: 20100831
  10. PANTOPRAZOLE SODIUM [Concomitant]
     Dates: start: 20100225, end: 20100306
  11. GRANISETRON HCL [Concomitant]
     Dates: start: 20100712, end: 20100831
  12. VERGENTAN [Concomitant]
     Dates: start: 20100712, end: 20100716
  13. FORTECORTIN [Concomitant]
     Dates: start: 20100730, end: 20100808
  14. LORAZEPAM [Concomitant]
     Dates: start: 20100712, end: 20100831

REACTIONS (2)
  - GENERAL PHYSICAL HEALTH DETERIORATION [None]
  - PNEUMONIA [None]
